FAERS Safety Report 9632264 (Version 3)
Quarter: 2013Q4

REPORT INFORMATION
  Report Type: Report from Study
  Country: US (occurrence: US)
  Receive Date: 20131018
  Receipt Date: 20131028
  Transmission Date: 20140711
  Serious: Yes (Hospitalization)
  Sender: FDA-Public Use
  Company Number: US-ABBVIE-13P-163-1136551-00

PATIENT
  Age: 76 Year
  Sex: Female
  Weight: 75.36 kg

DRUGS (11)
  1. HUMIRA [Suspect]
     Indication: PSORIASIS
     Dosage: 1 IN 2 WEEKS ON MONDAY
     Dates: start: 20130624
  2. UREA [Concomitant]
     Indication: PSORIASIS
  3. METFORMIN [Concomitant]
     Indication: DIABETES MELLITUS
     Dosage: WITH MEALS; DURATION: LESS THAN 2 YEARS
  4. ENALAPRIL [Concomitant]
     Indication: HYPERTENSION
  5. METOPROLOL SUCCINATE [Concomitant]
     Indication: BLOOD PRESSURE
     Dosage: DURATION: LESS THAN 2 YEARS
  6. FISH OIL [Concomitant]
     Indication: PRODUCT USED FOR UNKNOWN INDICATION
  7. CALCIUM 600+D [Concomitant]
     Indication: PRODUCT USED FOR UNKNOWN INDICATION
  8. VITAMIN C [Concomitant]
     Indication: PRODUCT USED FOR UNKNOWN INDICATION
  9. STRESSTABS [Concomitant]
     Indication: PRODUCT USED FOR UNKNOWN INDICATION
  10. AMLODIPINE [Concomitant]
     Indication: HYPERTENSION
     Dates: start: 20130812
  11. CYCLOSPORINE [Concomitant]
     Indication: PSORIASIS
     Dosage: TAPERING DOSE
     Dates: start: 20130401

REACTIONS (8)
  - Local swelling [Recovering/Resolving]
  - Psoriasis [Recovering/Resolving]
  - Skin exfoliation [Unknown]
  - Drug ineffective [Recovering/Resolving]
  - Skin lesion [Recovering/Resolving]
  - Pain in extremity [Recovering/Resolving]
  - Pain in extremity [Recovering/Resolving]
  - Erythema [Recovering/Resolving]
